FAERS Safety Report 20554803 (Version 1)
Quarter: 2022Q1

REPORT INFORMATION
  Report Type: Spontaneous
  Country: GB (occurrence: GB)
  Receive Date: 20220304
  Receipt Date: 20220304
  Transmission Date: 20220424
  Serious: Yes (Life-Threatening, Other)
  Sender: FDA-Public Use
  Company Number: GB-MHRA-MED-202202151501132100-29TZL

PATIENT
  Age: 5 Year
  Sex: Female
  Weight: 29 kg

DRUGS (3)
  1. ATRACURIUM BESYLATE [Suspect]
     Active Substance: ATRACURIUM BESYLATE
     Indication: Induction of anaesthesia
     Dosage: UNK
     Dates: start: 20220215
  2. PROPOFOL [Concomitant]
     Active Substance: PROPOFOL
     Indication: Anaesthesia
     Dates: start: 20220215
  3. REMIFENTANIL [Concomitant]
     Active Substance: REMIFENTANIL
     Indication: Anaesthesia
     Dates: start: 20220215

REACTIONS (3)
  - Anaphylactic reaction [Not Recovered/Not Resolved]
  - Circulatory collapse [Unknown]
  - Bronchospasm [Unknown]

NARRATIVE: CASE EVENT DATE: 20220215
